FAERS Safety Report 6396635-X (Version None)
Quarter: 2009Q4

REPORT INFORMATION
  Report Type: 
  Country: None (occurrence: None)
  Receive Date: 20091012
  Receipt Date: 20091005
  Transmission Date: 20100525
  Serious: Yes (Hospitalization, Other)
  Sender: FDA-Public Use
  Company Number: IE-AMGEN-UK362057

PATIENT
  Sex: Male

DRUGS (6)
  1. NEULASTA [Suspect]
     Indication: CHEMOTHERAPY
     Route: 058
     Dates: start: 20090728
  2. SEPTRIN [Suspect]
     Route: 065
  3. ALLOPURINOL [Suspect]
     Route: 065
  4. FLUDARABINE [Concomitant]
     Route: 065
     Dates: start: 20090724
  5. CYCLOPHOSPHAMIDE [Concomitant]
     Route: 065
     Dates: start: 20090724
  6. RITUXIMAB [Concomitant]
     Route: 065
     Dates: start: 20090825

REACTIONS (4)
  - ERYTHEMA [None]
  - FLUID RETENTION [None]
  - RASH [None]
  - SWELLING [None]
